FAERS Safety Report 4362788-8 (Version None)
Quarter: 2004Q2

REPORT INFORMATION
  Report Type: 
  Country: None (occurrence: None)
  Receive Date: 20040517
  Receipt Date: 20040323
  Transmission Date: 20050107
  Serious: No
  Sender: FDA-Public Use
  Company Number: S04-USA-02070-01

PATIENT
  Age: 80 Year
  Sex: Female

DRUGS (9)
  1. NAMENDA [Suspect]
     Indication: DEMENTIA ALZHEIMER'S TYPE
     Dosage: 5 MG QD PO
     Route: 048
     Dates: start: 20040223, end: 20040229
  2. NAMENDA [Suspect]
     Indication: DEMENTIA ALZHEIMER'S TYPE
     Dosage: 10 MG QD PO
     Route: 048
     Dates: start: 20040301, end: 20040307
  3. NAMENDA [Suspect]
     Indication: DEMENTIA ALZHEIMER'S TYPE
     Dosage: 15 MG QD PO
     Route: 048
     Dates: start: 20040308, end: 20040315
  4. ARICEPT [Concomitant]
  5. DILANTIN [Concomitant]
  6. COZAAR [Concomitant]
  7. CELEXA [Concomitant]
  8. AMILORIDE [Concomitant]
  9. PLAVIX [Concomitant]

REACTIONS (3)
  - DEHYDRATION [None]
  - DRY MOUTH [None]
  - SKIN DISCOLOURATION [None]
